FAERS Safety Report 8955900 (Version 3)
Quarter: 2013Q1

REPORT INFORMATION
  Report Type: Spontaneous
  Country: JP (occurrence: JP)
  Receive Date: 20121210
  Receipt Date: 20130226
  Transmission Date: 20140127
  Serious: Yes (Disabling)
  Sender: FDA-Public Use
  Company Number: PHHY2012JP112833

PATIENT
  Age: 75 Year
  Sex: Male
  Weight: 65 kg

DRUGS (2)
  1. EXJADE [Suspect]
     Indication: IRON OVERLOAD
     Dosage: 500 MG, ONCE A DAILY
     Route: 048
     Dates: start: 20121128, end: 20121204
  2. VIDAZA [Suspect]
     Dosage: 75 MG/M2, UNK
     Route: 041
     Dates: start: 20121129, end: 20121205

REACTIONS (3)
  - Autoimmune haemolytic anaemia [Not Recovered/Not Resolved]
  - Erythema [Recovered/Resolved]
  - Rash [Recovered/Resolved]
